FAERS Safety Report 5919696-8 (Version None)
Quarter: 2008Q4

REPORT INFORMATION
  Report Type: 
  Country: None (occurrence: None)
  Receive Date: 20081010
  Receipt Date: 20081002
  Transmission Date: 20090506
  Serious: Yes (Hospitalization)
  Sender: FDA-Public Use
  Company Number: URSO-2008-060 FUP#2

PATIENT
  Age: 44 Year
  Sex: Male

DRUGS (7)
  1. URSO 250 [Suspect]
     Indication: ALCOHOLIC LIVER DISEASE
     Dosage: 600 MG, ORAL
     Route: 048
     Dates: start: 19920601, end: 20080428
  2. GLUCOSAMINE (GLUCOSAMINE) [Suspect]
  3. VITAMINE C (VITAMINE [Suspect]
  4. TERMERIC (MEDICINAL HERB) [Suspect]
     Dosage: ORAL
     Route: 048
  5. PROPOLIS UNDILUTED SOLUTION [Concomitant]
  6. SPIRULINA (DIETARY SUPPLEMENT) [Concomitant]
  7. AMINO TABLET [Concomitant]

REACTIONS (6)
  - ALTERED STATE OF CONSCIOUSNESS [None]
  - BLOOD ALBUMIN DECREASED [None]
  - HEPATITIS ACUTE [None]
  - HYPONATRAEMIA [None]
  - INTERNATIONAL NORMALISED RATIO INCREASED [None]
  - RHABDOMYOLYSIS [None]
